FAERS Safety Report 6410978-2 (Version None)
Quarter: 2009Q4

REPORT INFORMATION
  Report Type: 
  Country: None (occurrence: None)
  Receive Date: 20091020
  Receipt Date: 20091020
  Transmission Date: 20100525
  Serious: Yes (Other)
  Sender: FDA-Public Use
  Company Number: None

PATIENT
  Sex: Female
  Weight: 79.8331 kg

DRUGS (1)
  1. CEPHALEXIN [Suspect]
     Indication: LOCALISED INFECTION
     Dosage: 500MG'S 3X'S A DAY ?
     Dates: start: 20091001, end: 20091005

REACTIONS (4)
  - MUSCLE SPASMS [None]
  - MYALGIA [None]
  - SCREAMING [None]
  - WALKING AID USER [None]
